FAERS Safety Report 22789664 (Version 4)
Quarter: 2024Q1

REPORT INFORMATION
  Report Type: Spontaneous
  Country: US (occurrence: US)
  Receive Date: 20230804
  Receipt Date: 20240213
  Transmission Date: 20240410
  Serious: Yes (Death, Other)
  Sender: FDA-Public Use
  Company Number: US-PFIZER INC-PV202300133286

PATIENT
  Age: 72 Year
  Sex: Female

DRUGS (1)
  1. XELJANZ XR [Suspect]
     Active Substance: TOFACITINIB CITRATE
     Indication: Rheumatoid arthritis-associated interstitial lung disease
     Dosage: 11 MG, DAILY
     Dates: start: 2020

REACTIONS (4)
  - Death [Fatal]
  - Hepatic steatosis [Unknown]
  - Liver function test increased [Unknown]
  - Transaminases increased [Unknown]
